FAERS Safety Report 15235273 (Version 1)
Quarter: 2018Q3

REPORT INFORMATION
  Report Type: Other
  Country: NL (occurrence: NL)
  Receive Date: 20180803
  Receipt Date: 20180803
  Transmission Date: 20181010
  Serious: Yes (Hospitalization)
  Sender: FDA-Public Use
  Company Number: NL-MACLEODS PHARMACEUTICALS US LTD-MAC2018015956

PATIENT

DRUGS (2)
  1. ARIPIPRAZOLE. [Suspect]
     Active Substance: ARIPIPRAZOLE
     Indication: BIPOLAR I DISORDER
     Dosage: 15 MILLIGRAM, QD, 1X DAAGS 1 TABLET
     Route: 048
     Dates: start: 20180622, end: 20180622
  2. QUETIAPINE. [Concomitant]
     Active Substance: QUETIAPINE
     Indication: PRODUCT USED FOR UNKNOWN INDICATION
     Dosage: 1 DOSAGE FORM, 100, 200 EN 300 MG
     Route: 065

REACTIONS (3)
  - Feeling jittery [Recovering/Resolving]
  - Feeling hot [Recovering/Resolving]
  - Musculoskeletal discomfort [Recovering/Resolving]

NARRATIVE: CASE EVENT DATE: 20180710
